FAERS Safety Report 6215213-6 (Version None)
Quarter: 2009Q2

REPORT INFORMATION
  Report Type: 
  Country: None (occurrence: None)
  Receive Date: 20090604
  Receipt Date: 20090604
  Transmission Date: 20091009
  Serious: Yes (Disabling)
  Sender: FDA-Public Use
  Company Number: US-PFIZER INC-2007024895

PATIENT
  Sex: Male
  Weight: 77 kg

DRUGS (3)
  1. ZOLOFT [Suspect]
     Dates: start: 20070310
  2. ACETYLSALICYLIC ACID SRT [Concomitant]
     Indication: ARTERIOSCLEROSIS
  3. XANAX [Concomitant]
     Indication: ANXIETY

REACTIONS (8)
  - ADVERSE EVENT [None]
  - BRADYPHRENIA [None]
  - DISABILITY [None]
  - DRUG INEFFECTIVE [None]
  - EJACULATION DISORDER [None]
  - ERECTILE DYSFUNCTION [None]
  - LIBIDO DECREASED [None]
  - SOMNOLENCE [None]
